FAERS Safety Report 10837831 (Version 2)
Quarter: 2015Q2

REPORT INFORMATION
  Report Type: Spontaneous
  Country: CH (occurrence: None)
  Receive Date: 20150218
  Receipt Date: 20150407
  Transmission Date: 20150821
  Serious: Yes (Hospitalization)
  Sender: FDA-Public Use
  Company Number: 20150078

PATIENT
  Age: 80 Year
  Sex: Male

DRUGS (13)
  1. ERYTHROMYCIN. [Concomitant]
     Active Substance: ERYTHROMYCIN
  2. FERINJECT [Suspect]
     Active Substance: FERRIC CARBOXYMALTOSE
     Indication: ANAEMIA
     Dosage: 1000 WKLY TOTAL DOSE 2000MG
     Dates: start: 20150101
  3. LOVENOX [Suspect]
     Active Substance: ENOXAPARIN SODIUM
     Indication: PRODUCT USED FOR UNKNOWN INDICATION
     Dates: start: 20141203, end: 20150111
  4. AMOXICILLIN. [Concomitant]
     Active Substance: AMOXICILLIN
  5. EUPANTOL [Suspect]
     Active Substance: PANTOPRAZOLE SODIUM
     Indication: IMPAIRED GASTRIC EMPTYING
     Dates: start: 20141216, end: 20150109
  6. CRESTOR [Concomitant]
     Active Substance: ROSUVASTATIN CALCIUM
  7. CEFOTAXIME [Concomitant]
     Active Substance: CEFOTAXIME\CEFOTAXIME SODIUM
  8. AMLOR (AMLODIPINE BESILATE) [Concomitant]
     Active Substance: AMLODIPINE BESYLATE
  9. KARDEGIC (DL-LYSINE ACETYLSALICYLATE) [Concomitant]
  10. MECIR (TAMSULOSIN HYDROCHLORIDE) [Concomitant]
  11. TADENAN (PRUNUS AFRICANA EXTRACT) [Concomitant]
  12. AMIKACIN [Concomitant]
     Active Substance: AMIKACIN
  13. ONDANSETRON [Concomitant]
     Active Substance: ONDANSETRON

REACTIONS (3)
  - Thrombocytopenia [None]
  - Gingival bleeding [None]
  - Overdose [None]

NARRATIVE: CASE EVENT DATE: 20150116
